FAERS Safety Report 19844781 (Version 2)
Quarter: 2021Q3

REPORT INFORMATION
  Report Type: Spontaneous
  Country: CN (occurrence: CN)
  Receive Date: 20210917
  Receipt Date: 20210928
  Transmission Date: 20211014
  Serious: Yes (Hospitalization)
  Sender: FDA-Public Use
  Company Number: CN-TOPROL-2021000200

PATIENT
  Age: 43 Year
  Sex: Male
  Weight: 65 kg

DRUGS (6)
  1. BETALOC [Suspect]
     Active Substance: METOPROLOL
     Dosage: THE PATIENT TOOK HALF A TABLET.
     Route: 048
     Dates: start: 20210913, end: 20210914
  2. BETALOC [Suspect]
     Active Substance: METOPROLOL
     Dosage: THE DOSE WAS REDUCED TO A QUARTER OF THE TABLETS.
     Route: 048
  3. ADALAT [Concomitant]
     Active Substance: NIFEDIPINE
     Dosage: ONE TABLET AT A TIME
     Route: 065
     Dates: start: 202104
  4. IRBESARTAN. [Concomitant]
     Active Substance: IRBESARTAN
     Dosage: ONE TABLET AT A TIME
     Route: 065
     Dates: start: 202104
  5. BETALOC [Suspect]
     Active Substance: METOPROLOL
     Route: 048
     Dates: start: 202104
  6. BISOPROLOL [Concomitant]
     Active Substance: BISOPROLOL
     Route: 065

REACTIONS (4)
  - Gastritis [Recovering/Resolving]
  - Polyp [Recovering/Resolving]
  - Product use in unapproved indication [Unknown]
  - Heart rate increased [Not Recovered/Not Resolved]

NARRATIVE: CASE EVENT DATE: 202108
